FAERS Safety Report 8492367-2 (Version None)
Quarter: 2012Q3

REPORT INFORMATION
  Report Type: 
  Country: None (occurrence: None)
  Receive Date: 20120706
  Receipt Date: 20120628
  Transmission Date: 20120928
  Serious: Yes (Hospitalization)
  Sender: FDA-Public Use
  Company Number: CA-ROCHE-1053998

PATIENT
  Sex: Female

DRUGS (2)
  1. XOLAIR [Suspect]
     Indication: ASTHMA
     Route: 058
     Dates: start: 20101006
  2. XOLAIR [Suspect]
     Dates: start: 20120628

REACTIONS (4)
  - DYSPNOEA [None]
  - PREGNANCY [None]
  - ABDOMINAL PAIN [None]
  - GESTATIONAL DIABETES [None]
